FAERS Safety Report 9858480 (Version 1)
Quarter: 2014Q1

REPORT INFORMATION
  Report Type: Spontaneous
  Country: GB (occurrence: GB)
  Receive Date: 20140131
  Receipt Date: 20140131
  Transmission Date: 20141002
  Serious: Yes (Other)
  Sender: FDA-Public Use
  Company Number: GB-PAR PHARMACEUTICAL, INC-2014SCPR008895

PATIENT
  Sex: 0

DRUGS (2)
  1. LABETALOL [Suspect]
     Indication: GESTATIONAL HYPERTENSION
     Dosage: 100 MG, BID
     Route: 065
  2. LABETALOL [Suspect]
     Dosage: 100 MG, BID
     Route: 065

REACTIONS (2)
  - Raynaud^s phenomenon [Recovered/Resolved]
  - Exposure during pregnancy [Unknown]
